FAERS Safety Report 7899743-7 (Version None)
Quarter: 2011Q4

REPORT INFORMATION
  Report Type: 
  Country: None (occurrence: None)
  Receive Date: 20111107
  Receipt Date: 20110919
  Transmission Date: 20120403
  Serious: No
  Sender: FDA-Public Use
  Company Number: US-AMGEN-USASP2011048391

PATIENT
  Age: 39 Year
  Sex: Male
  Weight: 72.562 kg

DRUGS (4)
  1. PLAQUENIL [Concomitant]
     Dosage: 200 MG, UNK
  2. PREDNISONE [Concomitant]
     Dosage: 5 MG, UNK
  3. ENBREL [Suspect]
     Indication: PRODUCT USED FOR UNKNOWN INDICATION
     Dosage: 50 MG, QWK
  4. MULTIVITAMIN                       /00097801/ [Concomitant]

REACTIONS (1)
  - RASH GENERALISED [None]
